FAERS Safety Report 7792640-7 (Version None)
Quarter: 2011Q4

REPORT INFORMATION
  Report Type: 
  Country: None (occurrence: None)
  Receive Date: 20111003
  Receipt Date: 20110923
  Transmission Date: 20120403
  Serious: Yes (Hospitalization)
  Sender: FDA-Public Use
  Company Number: US-ASTRAZENECA-2011SE57669

PATIENT
  Age: 65 Year
  Sex: Male

DRUGS (2)
  1. SEROQUEL [Suspect]
     Indication: DEPRESSION
     Route: 048
  2. SEROQUEL [Suspect]
     Indication: POST-TRAUMATIC STRESS DISORDER
     Route: 048

REACTIONS (5)
  - OXYGEN SATURATION DECREASED [None]
  - DRUG PRESCRIBING ERROR [None]
  - HYPOTENSION [None]
  - DRUG INTERACTION [None]
  - GAIT DISTURBANCE [None]
